FAERS Safety Report 4336705-0 (Version None)
Quarter: 2004Q2

REPORT INFORMATION
  Report Type: 
  Country: None (occurrence: None)
  Receive Date: 20040408
  Receipt Date: 20040329
  Transmission Date: 20050107
  Serious: Yes (Congenital Anomaly)
  Sender: FDA-Public Use
  Company Number: 04P-163-0254055-00

PATIENT
  Age: 3 Month
  Sex: Male

DRUGS (1)
  1. KALETRA [Suspect]
     Indication: DRUG EXPOSURE DURING PREGNANCY

REACTIONS (3)
  - CONGENITAL ANOMALY [None]
  - CONGENITAL CYSTIC LUNG [None]
  - MATERNAL DRUGS AFFECTING FOETUS [None]
